FAERS Safety Report 9849631 (Version 2)
Quarter: 2014Q2

REPORT INFORMATION
  Report Type: Spontaneous
  Country: US (occurrence: US)
  Receive Date: 20140128
  Receipt Date: 20140410
  Transmission Date: 20141212
  Serious: No
  Sender: FDA-Public Use
  Company Number: US-PFIZER INC-2014024677

PATIENT
  Sex: Female
  Weight: 72.56 kg

DRUGS (2)
  1. CELEBREX [Suspect]
     Indication: SCOLIOSIS
     Dosage: DAILY
  2. CELEBREX [Suspect]
     Indication: OSTEOPOROSIS

REACTIONS (3)
  - Off label use [Unknown]
  - Pain [Unknown]
  - Drug hypersensitivity [Unknown]
